FAERS Safety Report 24649831 (Version 2)
Quarter: 2025Q3

REPORT INFORMATION
  Report Type: Report from Study
  Country: US (occurrence: US)
  Receive Date: 20241121
  Receipt Date: 20250803
  Transmission Date: 20251020
  Serious: Yes (Other)
  Sender: ALEXION PHARMACEUTICALS
  Company Number: US-AstraZeneca-CH-00748597A

PATIENT
  Sex: Male

DRUGS (1)
  1. ACALABRUTINIB [Suspect]
     Active Substance: ACALABRUTINIB

REACTIONS (5)
  - Syncope [Unknown]
  - Cardiac disorder [Unknown]
  - Heart rate abnormal [Unknown]
  - Heart rate increased [Unknown]
  - Blood pressure fluctuation [Unknown]
